FAERS Safety Report 25729047 (Version 4)
Quarter: 2025Q3

REPORT INFORMATION
  Report Type: Spontaneous
  Country: US (occurrence: US)
  Receive Date: 20250827
  Receipt Date: 20250912
  Transmission Date: 20251021
  Serious: No
  Sender: AMGEN
  Company Number: US-AMGEN-USASP2025166529

PATIENT
  Age: 62 Year
  Sex: Male

DRUGS (5)
  1. REPATHA [Suspect]
     Active Substance: EVOLOCUMAB
     Indication: Glycosylated haemoglobin
     Dosage: 140 MILLIGRAM, Q2WK
     Route: 058
     Dates: start: 202508
  2. TRULICITY [Concomitant]
     Active Substance: DULAGLUTIDE
  3. OZEMPIC [Concomitant]
     Active Substance: SEMAGLUTIDE
  4. RYBELSUS [Concomitant]
     Active Substance: SEMAGLUTIDE
  5. JARDIANCE [Concomitant]
     Active Substance: EMPAGLIFLOZIN

REACTIONS (7)
  - Accidental exposure to product [Unknown]
  - Device difficult to use [Unknown]
  - Drug dose omission by device [Unknown]
  - Injection site haemorrhage [Unknown]
  - Herpes zoster [Not Recovered/Not Resolved]
  - Dysuria [Unknown]
  - Miliaria [Unknown]

NARRATIVE: CASE EVENT DATE: 20250816
